FAERS Safety Report 9553505 (Version 1)
Quarter: 2013Q3

REPORT INFORMATION
  Report Type: Spontaneous
  Country: US (occurrence: US)
  Receive Date: 20130925
  Receipt Date: 20130925
  Transmission Date: 20140515
  Serious: Yes (Other)
  Sender: FDA-Public Use
  Company Number: US-PFIZER INC-2013273747

PATIENT
  Age: 47 Year
  Sex: Female

DRUGS (1)
  1. LYRICA [Suspect]
     Indication: PAIN
     Dosage: 300 MG, 3X/DAY

REACTIONS (20)
  - Dysuria [Unknown]
  - Swelling [Unknown]
  - Tremor [Unknown]
  - Anxiety [Unknown]
  - Arthralgia [Unknown]
  - Muscle spasms [Unknown]
  - Arthropathy [Unknown]
  - Overdose [Unknown]
  - Nephrolithiasis [Unknown]
  - Weight increased [Unknown]
  - Visual acuity reduced [Unknown]
  - Hypertension [Unknown]
  - Myocardial infarction [Unknown]
  - Osteoporosis [Unknown]
  - Ankle fracture [Unknown]
  - Depression [Unknown]
  - Drug dependence [Unknown]
  - Chronic obstructive pulmonary disease [Unknown]
  - Asthma [Unknown]
  - Headache [Unknown]
